FAERS Safety Report 10521712 (Version 1)
Quarter: 2014Q4

REPORT INFORMATION
  Report Type: Spontaneous
  Country: US (occurrence: None)
  Receive Date: 20141014
  Receipt Date: 20141014
  Transmission Date: 20150528
  Serious: Yes (Other)
  Sender: FDA-Public Use
  Company Number: 1469877

PATIENT
  Age: 53 Year
  Sex: Male
  Weight: 81.65 kg

DRUGS (6)
  1. LIPITOR [Concomitant]
     Active Substance: ATORVASTATIN CALCIUM
  2. TRAZODONE [Concomitant]
     Active Substance: TRAZODONE HYDROCHLORIDE
  3. UNKNOWN ANTIHISTAMINE [Concomitant]
     Active Substance: ANTIHISTAMINES NOS
  4. ADVAIR HFA [Concomitant]
     Active Substance: FLUTICASONE PROPIONATE\SALMETEROL XINAFOATE
  5. PROZAC [Concomitant]
     Active Substance: FLUOXETINE HYDROCHLORIDE
  6. AURO-DRI [Suspect]
     Active Substance: ISOPROPYL ALCOHOL
     Dosage: INTENTIONAL OCULAR EXPOSURE
     Dates: start: 20140919

REACTIONS (6)
  - Visual acuity reduced [None]
  - Product container issue [None]
  - Corneal abrasion [None]
  - Vision blurred [None]
  - Accidental exposure to product [None]
  - Eye pain [None]

NARRATIVE: CASE EVENT DATE: 20140919
